FAERS Safety Report 10017693 (Version 1)
Quarter: 2014Q1

REPORT INFORMATION
  Report Type: Spontaneous
  Country: US (occurrence: US)
  Receive Date: 20140318
  Receipt Date: 20140318
  Transmission Date: 20141002
  Serious: No
  Sender: FDA-Public Use
  Company Number: US-BRISTOL-MYERS SQUIBB COMPANY-17426727

PATIENT
  Age: 48 Year
  Sex: Male

DRUGS (14)
  1. ERBITUX [Suspect]
  2. DILAUDID [Concomitant]
  3. MORPHINE [Concomitant]
  4. ONDANSETRON [Concomitant]
  5. CALCIUM [Concomitant]
  6. DRONABINOL [Concomitant]
  7. MAGNESIUM [Concomitant]
  8. OMEPRAZOLE [Concomitant]
  9. AMLODIPINE [Concomitant]
  10. AMBIEN [Concomitant]
  11. GABAPENTIN [Concomitant]
  12. MEGESTROL [Concomitant]
  13. POTASSIUM [Concomitant]
  14. HYDROCODONE [Concomitant]

REACTIONS (3)
  - Rash pruritic [Unknown]
  - Haematochezia [Unknown]
  - Fatigue [Unknown]
